FAERS Safety Report 8956998 (Version 2)
Quarter: 2014Q2

REPORT INFORMATION
  Report Type: Spontaneous
  Country: FR (occurrence: FR)
  Receive Date: 20121210
  Receipt Date: 20140507
  Transmission Date: 20141212
  Serious: Yes (Hospitalization)
  Sender: FDA-Public Use
  Company Number: FR-ROCHE-1162123

PATIENT
  Age: 64 Year
  Sex: Female

DRUGS (6)
  1. MABTHERA [Suspect]
     Indication: B-CELL LYMPHOMA
     Route: 042
     Dates: start: 20090914, end: 20101027
  2. INTERFERON ALFA-2A [Suspect]
     Indication: B-CELL LYMPHOMA
     Route: 058
     Dates: start: 20090914, end: 20101027
  3. CYCLOPHOSPHAMIDE [Suspect]
     Indication: B-CELL LYMPHOMA
     Route: 042
     Dates: start: 20090914, end: 20091214
  4. ETOPOSIDE [Suspect]
     Indication: B-CELL LYMPHOMA
     Route: 042
     Dates: start: 20090914, end: 20091214
  5. ADRIAMYCIN [Suspect]
     Indication: B-CELL LYMPHOMA
     Route: 042
     Dates: start: 20090914, end: 20091214
  6. PREDNISONE [Suspect]
     Indication: B-CELL LYMPHOMA
     Route: 042
     Dates: start: 20090914, end: 20091214

REACTIONS (1)
  - Metastatic malignant melanoma [Recovering/Resolving]
